FAERS Safety Report 11021539 (Version 1)
Quarter: 2015Q2

REPORT INFORMATION
  Report Type: Spontaneous
  Country: US (occurrence: US)
  Receive Date: 20150413
  Receipt Date: 20150413
  Transmission Date: 20150821
  Serious: Yes (Hospitalization, Other)
  Sender: FDA-Public Use
  Company Number: US-AMGEN-USASP2015034114

PATIENT
  Age: 82 Year
  Sex: Female

DRUGS (1)
  1. PROLIA [Suspect]
     Active Substance: DENOSUMAB
     Indication: PRODUCT USED FOR UNKNOWN INDICATION
     Dosage: UNK, UNK
     Route: 065
     Dates: start: 201404

REACTIONS (5)
  - Hernia [Unknown]
  - Herpes zoster [Unknown]
  - Small intestinal obstruction [Unknown]
  - Intervertebral disc disorder [Unknown]
  - Compression fracture [Unknown]

NARRATIVE: CASE EVENT DATE: 201503
